FAERS Safety Report 13007434 (Version 3)
Quarter: 2018Q4

REPORT INFORMATION
  Report Type: Spontaneous
  Country: CO (occurrence: CO)
  Receive Date: 20161207
  Receipt Date: 20181112
  Transmission Date: 20190204
  Serious: Yes (Other)
  Sender: FDA-Public Use
  Company Number: CO-PFIZER INC-2016562961

PATIENT
  Sex: Female

DRUGS (6)
  1. ADVIL [Suspect]
     Active Substance: IBUPROFEN
     Route: 048
  2. ADVIL ULTRA (CAFEINE/IBUPROFEN) [Suspect]
     Active Substance: CAFFEINE\IBUPROFEN
     Dosage: UNK
  3. IBUPROFEN. [Suspect]
     Active Substance: IBUPROFEN
     Dosage: UNK
  4. MIGRANOL (ATROPINE SULFATE\CAFFE1 INE\NICOTINIC ACID\PAPAVERINE HYDROCHLORIDE\PARACETAMOL) [Suspect]
     Active Substance: ACETAMINOPHEN\ATROPINE\CAFFEINE\NIACIN\PAPAVERINE
     Dosage: UNK
  5. SEVEDOL [Suspect]
     Active Substance: ACETAMINOPHEN\ASPIRIN\CAFFEINE
     Dosage: UNK
  6. DOLEX FORTE [Suspect]
     Active Substance: ACETAMINOPHEN\CAFFEINE
     Dosage: UNK

REACTIONS (1)
  - Drug dependence [Unknown]
